FAERS Safety Report 4870052-3 (Version None)
Quarter: 2005Q4

REPORT INFORMATION
  Report Type: 
  Country: None (occurrence: None)
  Receive Date: 20051223
  Receipt Date: 20051212
  Transmission Date: 20060501
  Serious: Yes (Other)
  Sender: FDA-Public Use
  Company Number: 2005BI004581

PATIENT
  Age: 43 Year
  Sex: Male
  Weight: 87.5442 kg

DRUGS (14)
  1. AVONEX [Suspect]
     Indication: MULTIPLE SCLEROSIS
     Dosage: 30 UG; QW; IM
     Route: 030
     Dates: start: 19960101, end: 20030801
  2. AVONEX [Suspect]
     Indication: MULTIPLE SCLEROSIS
     Dosage: 30 UG; QW; IM
     Route: 030
     Dates: start: 20030101
  3. BACLOFEN [Concomitant]
  4. ALLERGRA D [Concomitant]
  5. PREDNISONE [Concomitant]
  6. TIMOPTIC-XE [Concomitant]
  7. BETAGAN [Concomitant]
  8. HUMULIN N [Concomitant]
  9. ZESTERIL [Concomitant]
  10. TRICOR [Concomitant]
  11. ATROVENT [Concomitant]
  12. AMBIEN [Concomitant]
  13. NATURAL HERBS [Concomitant]
  14. VITAMIN SUPPLEMENTS [Concomitant]

REACTIONS (7)
  - BLOOD CHOLESTEROL ABNORMAL [None]
  - BLOOD PRESSURE ABNORMAL [None]
  - BODY TEMPERATURE INCREASED [None]
  - DYSPEPSIA [None]
  - FATIGUE [None]
  - LYMPHOMA [None]
  - PAIN [None]
